FAERS Safety Report 10478695 (Version 1)
Quarter: 2014Q3

REPORT INFORMATION
  Report Type: Spontaneous
  Country: US (occurrence: None)
  Receive Date: 20140924
  Receipt Date: 20140924
  Transmission Date: 20150326
  Serious: Yes (Hospitalization)
  Sender: FDA-Public Use
  Company Number: US-H14001-14-00679

PATIENT
  Age: 45 Year
  Sex: Female

DRUGS (6)
  1. LISINOPRIL (LISINOPRIL) [Suspect]
     Active Substance: LISINOPRIL
     Indication: HYPERTENSION
     Route: 048
  2. LACTULOSE (LACTULOSE) [Suspect]
     Active Substance: LACTULOSE
     Indication: CONSTIPATION
     Route: 048
  3. RISPERIDONE (RISPERIDONE) [Concomitant]
     Active Substance: RISPERIDONE
  4. LITHIUM CARBONATE (LITHIUM CARBONATE) [Suspect]
     Active Substance: LITHIUM CARBONATE
     Indication: MANIA
     Dosage: 600 MG (300 MG, 2 IN 1 D), ORAL
     Route: 048
  5. HYDROCHLOROTHIAZIDE (HYDROCHLOROTHIAZIDE) [Suspect]
     Active Substance: HYDROCHLOROTHIAZIDE
     Indication: HYPERTENSION
     Route: 048
  6. SSRI (SSRI) [Concomitant]
     Active Substance: UNSPECIFIED INGREDIENT

REACTIONS (4)
  - Fatigue [None]
  - Drug interaction [None]
  - Diarrhoea [None]
  - Toxicity to various agents [None]
